FAERS Safety Report 7919363-5 (Version None)
Quarter: 2011Q4

REPORT INFORMATION
  Report Type: 
  Country: None (occurrence: None)
  Receive Date: 20111116
  Receipt Date: 20111116
  Transmission Date: 20120403
  Serious: Yes (Other)
  Sender: FDA-Public Use
  Company Number: None

PATIENT
  Age: 9 Year
  Sex: Male
  Weight: 23.1334 kg

DRUGS (2)
  1. METHYLPHENIDATE [Suspect]
     Indication: ATTENTION DEFICIT/HYPERACTIVITY DISORDER
     Dosage: 36 MG DAILY ORAL
     Route: 048
     Dates: start: 20110501, end: 20110801
  2. VYVANSE [Suspect]
     Indication: ATTENTION DEFICIT/HYPERACTIVITY DISORDER
     Dosage: 30 MG DAILY ORAL
     Route: 048
     Dates: start: 20110801, end: 20111101

REACTIONS (3)
  - HEADACHE [None]
  - CONDITION AGGRAVATED [None]
  - ATTENTION DEFICIT/HYPERACTIVITY DISORDER [None]
